FAERS Safety Report 17296175 (Version 1)
Quarter: 2020Q1

REPORT INFORMATION
  Report Type: Spontaneous
  Country: IT (occurrence: IT)
  Receive Date: 20200122
  Receipt Date: 20200122
  Transmission Date: 20200409
  Serious: Yes (Death, Hospitalization, Other)
  Sender: FDA-Public Use
  Company Number: IT-CELLTRION INC.-2020IT017943

PATIENT

DRUGS (1)
  1. RITUXIMAB (UNKNOWN) [Suspect]
     Active Substance: RITUXIMAB
     Indication: LYMPHOMA
     Dosage: UNK
     Route: 065

REACTIONS (7)
  - Aspergilloma [Fatal]
  - Liver disorder [Unknown]
  - Intracardiac mass [Fatal]
  - Ventricular dysfunction [Unknown]
  - Pyrexia [Unknown]
  - Pancytopenia [Unknown]
  - Asthenia [Unknown]
